FAERS Safety Report 4993850-4 (Version None)
Quarter: 2006Q2

REPORT INFORMATION
  Report Type: 
  Country: None (occurrence: None)
  Receive Date: 20060503
  Receipt Date: 20060418
  Transmission Date: 20061013
  Serious: Yes (Hospitalization)
  Sender: FDA-Public Use
  Company Number: 13939

PATIENT
  Age: 91 Year
  Sex: Male

DRUGS (11)
  1. FRUSEMIDE [Suspect]
     Indication: POLYURIA
     Dosage: 80 MG FREQ UNK PO
     Route: 048
     Dates: end: 20060405
  2. DIGOXIN [Suspect]
     Indication: ATRIAL FIBRILLATION
     Dosage: 125 UG DAILY PO
     Route: 048
     Dates: start: 20051201, end: 20060405
  3. AMIODARONE [Suspect]
     Indication: ATRIAL FIBRILLATION
     Dosage: 200 MG FREQ UNK PO
     Route: 048
     Dates: start: 20051201, end: 20060405
  4. SPIRONOLACTONE [Suspect]
     Indication: POLYURIA
     Dosage: 25 MG DAILY PO
     Route: 048
     Dates: end: 20060405
  5. ARCOXIA [Suspect]
     Indication: ARTHRITIS
     Dosage: 80 MG DAILY PO
     Route: 048
     Dates: start: 20060201, end: 20060405
  6. COVERSYL [Suspect]
     Indication: BLOOD PRESSURE INCREASED
     Dosage: 4 MG DAILY PO
     Route: 048
     Dates: end: 20060405
  7. CEPHALEXIN [Concomitant]
  8. BISOPROLOL [Concomitant]
  9. SALBUTAMOL [Concomitant]
  10. ATROVENT [Concomitant]
  11. FLIXOTIDE [Concomitant]

REACTIONS (3)
  - DRUG LEVEL INCREASED [None]
  - LIVER FUNCTION TEST ABNORMAL [None]
  - RENAL FAILURE ACUTE [None]
